FAERS Safety Report 21119812 (Version 1)
Quarter: 2022Q3

REPORT INFORMATION
  Report Type: Spontaneous
  Country: US (occurrence: US)
  Receive Date: 20220722
  Receipt Date: 20220722
  Transmission Date: 20221027
  Serious: No
  Sender: FDA-Public Use
  Company Number: US-PERRIGO-21US029310

PATIENT
  Sex: Female

DRUGS (1)
  1. MOTRIN IB [Suspect]
     Active Substance: IBUPROFEN
     Indication: Nasopharyngitis
     Dosage: 200 MG, TWICE
     Route: 048
     Dates: start: 202109, end: 202109

REACTIONS (3)
  - Nightmare [Recovered/Resolved]
  - Hallucination [Recovered/Resolved]
  - Feeling abnormal [Recovered/Resolved]

NARRATIVE: CASE EVENT DATE: 20210901
